FAERS Safety Report 11032125 (Version 6)
Quarter: 2015Q4

REPORT INFORMATION
  Report Type: Spontaneous
  Country: FR (occurrence: FR)
  Receive Date: 20150415
  Receipt Date: 20151230
  Transmission Date: 20160304
  Serious: Yes (Hospitalization, Other)
  Sender: FDA-Public Use
  Company Number: FR-ASTELLAS-2015EU005914

PATIENT
  Age: 61 Year
  Sex: Male

DRUGS (5)
  1. DAFALGAN [Concomitant]
     Active Substance: ACETAMINOPHEN
     Indication: PAIN
     Dosage: 1 G, EVERY 4 HOURS
     Route: 048
     Dates: start: 2012
  2. ZOLADEX [Suspect]
     Active Substance: GOSERELIN ACETATE
     Indication: PROSTATE CANCER METASTATIC
     Dosage: 10.8 MG, EVERY 3 MONTHS, CYCLIC
     Route: 058
     Dates: start: 20150318, end: 20150331
  3. XTANDI [Suspect]
     Active Substance: ENZALUTAMIDE
     Indication: PROSTATE CANCER METASTATIC
     Dosage: 160 MG DAILY
     Route: 048
     Dates: start: 20150311, end: 20150330
  4. SOLUPRED                           /00016201/ [Concomitant]
     Active Substance: PREDNISOLONE
     Indication: NAUSEA
     Route: 048
     Dates: start: 2012
  5. DUROGESIC [Concomitant]
     Active Substance: FENTANYL
     Indication: PAIN
     Dosage: 50 ?G, 72H
     Route: 050
     Dates: start: 2012

REACTIONS (5)
  - Toxic skin eruption [Recovered/Resolved]
  - Acute generalised exanthematous pustulosis [Recovered/Resolved]
  - Purpura [Recovered/Resolved]
  - Gamma-glutamyltransferase increased [Recovered/Resolved]
  - Blood alkaline phosphatase abnormal [Recovered/Resolved]

NARRATIVE: CASE EVENT DATE: 20150328
